FAERS Safety Report 8314926-X (Version None)
Quarter: 2012Q2

REPORT INFORMATION
  Report Type: 
  Country: None (occurrence: None)
  Receive Date: 20120426
  Receipt Date: 20120418
  Transmission Date: 20120825
  Serious: Yes (Hospitalization)
  Sender: FDA-Public Use
  Company Number: CA-JNJFOC-20120407944

PATIENT
  Sex: Female
  Weight: 62 kg

DRUGS (1)
  1. REMICADE [Suspect]
     Indication: CROHN'S DISEASE
     Route: 042
     Dates: start: 20110811

REACTIONS (3)
  - APPENDICECTOMY [None]
  - INTESTINAL OBSTRUCTION [None]
  - INTESTINAL FISTULA [None]
